FAERS Safety Report 20375912 (Version 1)
Quarter: 2022Q1

REPORT INFORMATION
  Report Type: Spontaneous
  Country: US (occurrence: None)
  Receive Date: 20220125
  Receipt Date: 20220125
  Transmission Date: 20220423
  Serious: Yes (Other)
  Sender: FDA-Public Use
  Company Number: None

PATIENT
  Age: 9 Year
  Sex: Male
  Weight: 110.22 kg

DRUGS (3)
  1. GUANFACINE [Suspect]
     Active Substance: GUANFACINE
     Indication: Product used for unknown indication
     Dosage: FREQUENCY : DAILY;?
     Route: 048
     Dates: start: 20170101, end: 20170201
  2. Focalin XR 40mg BID [Concomitant]
     Dates: start: 20140101
  3. Focalin 10 mg - 3 tab daily [Concomitant]
     Dates: start: 20140101

REACTIONS (5)
  - Therapeutic product effect decreased [None]
  - Psychomotor hyperactivity [None]
  - Palpitations [None]
  - Decreased appetite [None]
  - Insomnia [None]

NARRATIVE: CASE EVENT DATE: 20170101
